FAERS Safety Report 8529695-8 (Version None)
Quarter: 2012Q3

REPORT INFORMATION
  Report Type: 
  Country: None (occurrence: None)
  Receive Date: 20120723
  Receipt Date: 20120716
  Transmission Date: 20120928
  Serious: Yes (Death, Hospitalization, Other)
  Sender: FDA-Public Use
  Company Number: US-JNJFOC-20090709700

PATIENT
  Age: 53 Year
  Sex: Male
  Weight: 61.59 kg

DRUGS (14)
  1. DOXORUBICIN HYDROCHLORIDE [Suspect]
     Indication: LYMPHOMA AIDS RELATED
     Dosage: ON DAY 1
     Route: 042
     Dates: start: 20080408, end: 20080408
  2. CYCLOPHOSPHAMIDE [Suspect]
     Indication: LYMPHOMA AIDS RELATED
     Dosage: CYCLE 1
     Route: 042
     Dates: start: 20080408, end: 20080408
  3. PEGFILGRASTIM [Concomitant]
     Indication: PALLIATIVE CARE
     Route: 065
  4. RITUXIMAB [Suspect]
     Dosage: CYCLE 6 - 611MG IN TOTAL
     Route: 042
     Dates: start: 20080904, end: 20080904
  5. CYCLOPHOSPHAMIDE [Suspect]
     Dosage: CYCLE 6-1222MG IN TOTAL
     Route: 042
     Dates: start: 20080904, end: 20080904
  6. NEUPOGEN [Concomitant]
     Indication: PALLIATIVE CARE
     Route: 065
  7. NEUPOGEN [Concomitant]
     Indication: PALLIATIVE CARE
     Route: 065
  8. VINCRISTINE [Suspect]
     Dosage: NOT MORE THAN 2 MG
     Route: 042
     Dates: start: 20080408, end: 20080408
  9. PREDNISONE [Suspect]
     Dosage: CYCLE 6- 500MG TOTAL
     Route: 048
     Dates: start: 20080904, end: 20080908
  10. DOXORUBICIN HYDROCHLORIDE [Suspect]
     Dosage: 6TH CYCLE-49 MG IN TOTAL
     Route: 042
     Dates: start: 20080904, end: 20080904
  11. VINCRISTINE [Suspect]
     Indication: LYMPHOMA AIDS RELATED
     Dosage: CYCLE 6-2MG IN TOTAL
     Route: 042
     Dates: start: 20080904, end: 20080904
  12. PREDNISONE [Suspect]
     Indication: LYMPHOMA AIDS RELATED
     Dosage: DAYS 1-5
     Route: 048
     Dates: start: 20080408, end: 20080412
  13. RITUXIMAB [Suspect]
     Indication: LYMPHOMA AIDS RELATED
     Dosage: CYCLE 1
     Route: 042
     Dates: start: 20080408, end: 20080408
  14. UNKNOWN MEDICATION [Concomitant]
     Indication: ANTIFUNGAL PROPHYLAXIS
     Route: 065

REACTIONS (7)
  - PALMAR-PLANTAR ERYTHRODYSAESTHESIA SYNDROME [None]
  - BLINDNESS [None]
  - PROGRESSIVE MULTIFOCAL LEUKOENCEPHALOPATHY [None]
  - OPTIC NERVE DISORDER [None]
  - DEATH [None]
  - PERIPHERAL MOTOR NEUROPATHY [None]
  - NEUROPATHY PERIPHERAL [None]
